FAERS Safety Report 13589478 (Version 1)
Quarter: 2017Q2

REPORT INFORMATION
  Report Type: Spontaneous
  Country: SE (occurrence: SE)
  Receive Date: 20170530
  Receipt Date: 20170530
  Transmission Date: 20170830
  Serious: Yes (Other)
  Sender: FDA-Public Use
  Company Number: SE-BRISTOL-MYERS SQUIBB COMPANY-BMS-2017-041390

PATIENT
  Age: 84 Year
  Sex: Female

DRUGS (3)
  1. BISOMYL [Concomitant]
     Indication: CARDIAC DISORDER
     Dosage: 1 DF, QD
     Route: 065
  2. ELIQUIS [Suspect]
     Active Substance: APIXABAN
     Indication: CEREBROVASCULAR ACCIDENT PROPHYLAXIS
     Dosage: 5 MG, BID
     Route: 048
     Dates: start: 201605
  3. OVESTERIN [Concomitant]
     Active Substance: ESTRIOL
     Indication: VAGINAL DISCHARGE
     Dosage: 1 DF, QWK
     Route: 065

REACTIONS (6)
  - Pain in extremity [Unknown]
  - Vaginal discharge [Unknown]
  - Knee operation [Unknown]
  - Muscle strain [Unknown]
  - Mass [Unknown]
  - Fatigue [Unknown]

NARRATIVE: CASE EVENT DATE: 201701
